FAERS Safety Report 17117737 (Version 1)
Quarter: 2019Q4

REPORT INFORMATION
  Report Type: Spontaneous
  Country: KE (occurrence: KE)
  Receive Date: 20191205
  Receipt Date: 20191205
  Transmission Date: 20200122
  Serious: Yes (Other)
  Sender: FDA-Public Use
  Company Number: KE-JNJFOC-20191145285

PATIENT

DRUGS (1)
  1. XARELTO [Suspect]
     Active Substance: RIVAROXABAN
     Indication: PRODUCT USED FOR UNKNOWN INDICATION
     Dosage: UNK
     Route: 048

REACTIONS (1)
  - Deep vein thrombosis [Unknown]
